FAERS Safety Report 24274690 (Version 4)
Quarter: 2024Q4

REPORT INFORMATION
  Report Type: Spontaneous
  Country: GB (occurrence: GB)
  Receive Date: 20240902
  Receipt Date: 20241213
  Transmission Date: 20250115
  Serious: No
  Sender: PFIZER
  Company Number: GB-PFIZER INC-PV202400112317

PATIENT
  Age: 10 Year
  Sex: Female

DRUGS (1)
  1. GENOTROPIN [Suspect]
     Active Substance: SOMATROPIN
     Indication: Growth hormone deficiency
     Dosage: 0.7 MG, DAILY (ONE DAY AS 0.6MG AND ANOTHER DAY 0.8 MG)
     Route: 058
     Dates: start: 2020

REACTIONS (7)
  - Drug dose omission by device [Unknown]
  - Device mechanical issue [Unknown]
  - Device leakage [Unknown]
  - Device breakage [Unknown]
  - Device material issue [Unknown]
  - Device connection issue [Unknown]
  - Device use error [Unknown]

NARRATIVE: CASE EVENT DATE: 20240801
